FAERS Safety Report 6678578-7 (Version None)
Quarter: 2010Q2

REPORT INFORMATION
  Report Type: 
  Country: None (occurrence: None)
  Receive Date: 20100409
  Receipt Date: 20100409
  Transmission Date: 20101027
  Serious: Yes (Other)
  Sender: FDA-Public Use
  Company Number: None

PATIENT
  Age: 79 Year
  Sex: Male
  Weight: 75 kg

DRUGS (1)
  1. PRIMIDONE [Suspect]
     Indication: ESSENTIAL TREMOR
     Dosage: 250MG PRIMIDONE 1 DAILY BY MOUTH
     Route: 048
     Dates: start: 20100319

REACTIONS (6)
  - ASTHENIA [None]
  - DIZZINESS [None]
  - DRUG TOXICITY [None]
  - HEADACHE [None]
  - LOSS OF CONSCIOUSNESS [None]
  - UNEVALUABLE EVENT [None]
